FAERS Safety Report 8243048 (Version 4)
Quarter: 2013Q3

REPORT INFORMATION
  Report Type: Report from Study
  Country: US (occurrence: US)
  Receive Date: 20111114
  Receipt Date: 20130911
  Transmission Date: 20140515
  Serious: Yes (Hospitalization)
  Sender: FDA-Public Use
  Company Number: US-EISAI INC-E7389-01724-CLI-US

PATIENT
  Age: 69 Year
  Sex: Female
  Weight: 94 kg

DRUGS (2)
  1. E7389 (BOLD) [Suspect]
     Indication: BREAST CANCER
     Route: 041
     Dates: start: 20110906
  2. HERCEPTIN [Suspect]
     Indication: BREAST CANCER
     Route: 041
     Dates: start: 20110906

REACTIONS (2)
  - Failure to thrive [Recovered/Resolved]
  - Neutropenia [Recovered/Resolved]
